FAERS Safety Report 14634681 (Version 9)
Quarter: 2023Q2

REPORT INFORMATION
  Report Type: Spontaneous
  Country: US (occurrence: US)
  Receive Date: 20180314
  Receipt Date: 20230406
  Transmission Date: 20230722
  Serious: No
  Sender: FDA-Public Use
  Company Number: US-PFIZER INC-2018103365

PATIENT
  Age: 63 Year
  Sex: Female

DRUGS (4)
  1. SOMAVERT [Suspect]
     Active Substance: PEGVISOMANT
     Indication: Acromegaly
     Dosage: 25 MG, DAILY
     Dates: start: 20080911
  2. SOMAVERT [Suspect]
     Active Substance: PEGVISOMANT
     Dosage: 25 MG, DAILY
     Route: 023
  3. SOMAVERT [Suspect]
     Active Substance: PEGVISOMANT
     Dosage: 30 MG, ALTERNATE DAY (EVERY OTHER DAY OR EVERY THIRD OR FOURTH DAY)
  4. SOMAVERT [Suspect]
     Active Substance: PEGVISOMANT
     Dosage: 30 MG, 1X/DAY

REACTIONS (4)
  - Product dose omission issue [Unknown]
  - Intentional dose omission [Unknown]
  - Nasopharyngitis [Unknown]
  - Headache [Unknown]
